FAERS Safety Report 4843619-6 (Version None)
Quarter: 2005Q4

REPORT INFORMATION
  Report Type: 
  Country: None (occurrence: None)
  Receive Date: 20051125
  Receipt Date: 20051111
  Transmission Date: 20060501
  Serious: No
  Sender: FDA-Public Use
  Company Number: US_0510122977

PATIENT
  Age: 22 Year
  Sex: Male
  Weight: 79 kg

DRUGS (6)
  1. ZYPREXA [Suspect]
     Indication: SCHIZOAFFECTIVE DISORDER
     Dosage: 20 MG, 2/D
     Dates: start: 20050817, end: 20050909
  2. CELEXA [Concomitant]
  3. ABILIFY [Concomitant]
  4. IBUPROFEN [Concomitant]
  5. ATIVAN [Concomitant]
  6. CLOZAPINE [Concomitant]

REACTIONS (4)
  - DRUG INEFFECTIVE [None]
  - LEUKOPENIA [None]
  - NEUTROPENIA [None]
  - PRESCRIBED OVERDOSE [None]
